FAERS Safety Report 11169206 (Version 1)
Quarter: 2015Q2

REPORT INFORMATION
  Report Type: Spontaneous
  Country: US (occurrence: US)
  Receive Date: 20150605
  Receipt Date: 20150605
  Transmission Date: 20150821
  Serious: No
  Sender: FDA-Public Use
  Company Number: US-PFIZER INC-2015188285

PATIENT
  Age: 63 Year
  Sex: Female
  Weight: 74.8 kg

DRUGS (3)
  1. ARAVA [Suspect]
     Active Substance: LEFLUNOMIDE
     Dosage: 50 MG, DAILY (1 PILL A DAY 50 MG)
  2. XELJANZ [Suspect]
     Active Substance: TOFACITINIB CITRATE
     Dosage: 5 MG, 2X/DAY
     Dates: start: 20150530
  3. XELJANZ [Suspect]
     Active Substance: TOFACITINIB CITRATE
     Indication: RHEUMATOID ARTHRITIS
     Dosage: UNK

REACTIONS (7)
  - Asthenia [Not Recovered/Not Resolved]
  - Pain [Recovering/Resolving]
  - Feeling abnormal [Unknown]
  - Nausea [Not Recovered/Not Resolved]
  - Headache [Not Recovered/Not Resolved]
  - Fatigue [Not Recovered/Not Resolved]
  - Malaise [Not Recovered/Not Resolved]

NARRATIVE: CASE EVENT DATE: 20150531
